FAERS Safety Report 21001579 (Version 1)
Quarter: 2022Q2

REPORT INFORMATION
  Report Type: Spontaneous
  Country: US (occurrence: US)
  Receive Date: 20220624
  Receipt Date: 20220624
  Transmission Date: 20220720
  Serious: No
  Sender: FDA-Public Use
  Company Number: US-BioHaven Pharmaceuticals-2022BHV000961

PATIENT
  Age: 64 Year
  Sex: Female
  Weight: 64.922 kg

DRUGS (1)
  1. NURTEC ODT [Suspect]
     Active Substance: RIMEGEPANT SULFATE
     Indication: Headache
     Dosage: STARTED GETTING PRESCRIPTIONS FROM US IN FEBRUARY, ON 07-FEB-2022, AND THE LAST TIME SHE FILLED WAS
     Route: 065

REACTIONS (2)
  - Drug ineffective [Unknown]
  - Inappropriate schedule of product administration [Unknown]
